FAERS Safety Report 7204480-8 (Version None)
Quarter: 2010Q4

REPORT INFORMATION
  Report Type: 
  Country: None (occurrence: None)
  Receive Date: 20101220
  Receipt Date: 20101207
  Transmission Date: 20110411
  Serious: Yes (Other)
  Sender: FDA-Public Use
  Company Number: 773641

PATIENT
  Age: 66 Year
  Sex: Female
  Weight: 85.4 kg

DRUGS (7)
  1. CARBOPLATIN [Suspect]
     Indication: OVARIAN CANCER
     Dosage: 704MG, INTRAVENOUS (NOT OTHERWISE SPECIFIED)
     Route: 042
     Dates: start: 20020901, end: 20101202
  2. DECADRON [Concomitant]
  3. ZANTAC [Concomitant]
  4. (ZOERAN /00955301/) [Concomitant]
  5. BENADRYL [Concomitant]
  6. ATIVAN [Concomitant]
  7. PACLITAXEL [Concomitant]

REACTIONS (5)
  - ABDOMINAL PAIN [None]
  - CHEST DISCOMFORT [None]
  - CHEST PAIN [None]
  - FEELING HOT [None]
  - PARAESTHESIA [None]
